FAERS Safety Report 20972592 (Version 1)
Quarter: 2022Q2

REPORT INFORMATION
  Report Type: Spontaneous
  Country: FR (occurrence: FR)
  Receive Date: 20220617
  Receipt Date: 20220617
  Transmission Date: 20220721
  Serious: Yes (Other)
  Sender: FDA-Public Use
  Company Number: None

PATIENT
  Age: 59 Year
  Sex: Male

DRUGS (3)
  1. ATENOLOL [Suspect]
     Active Substance: ATENOLOL
     Indication: Computerised tomogram
     Dosage: 5 MG/10 ML10.0ML ONCE/SINGLE ADMINISTRATION
     Route: 042
     Dates: start: 20220304, end: 20220304
  2. IOMEPROL [Suspect]
     Active Substance: IOMEPROL
     Indication: Computerised tomogram
     Dosage: 80.0ML ONCE/SINGLE ADMINISTRATION
     Route: 042
     Dates: end: 20220304
  3. CHLORHEXIDINE GLUCONATE [Suspect]
     Active Substance: CHLORHEXIDINE GLUCONATE
     Indication: Infection prophylaxis
     Route: 003
     Dates: start: 20220304, end: 20220304

REACTIONS (1)
  - Anaphylactoid reaction [Recovered/Resolved]

NARRATIVE: CASE EVENT DATE: 20220304
